FAERS Safety Report 9039116 (Version 1)
Quarter: 2013Q1

REPORT INFORMATION
  Report Type: Report from Study
  Country: US (occurrence: US)
  Receive Date: 20130129
  Receipt Date: 20130129
  Transmission Date: 20140127
  Serious: No
  Sender: FDA-Public Use
  Company Number: US-ABBOTT-12P-163-0912754-00

PATIENT
  Age: 53 Year
  Sex: Female

DRUGS (4)
  1. HUMIRA 40 MG/0.8 ML PEN [Suspect]
     Indication: COLITIS ULCERATIVE
     Dosage: LOADING DOSE
     Dates: start: 20120305
  2. HUMIRA 40 MG/0.8 ML PEN [Suspect]
  3. LEVOXYL [Concomitant]
     Indication: THYROID DISORDER
  4. AMITRIPTYLINE [Concomitant]
     Indication: INSOMNIA
     Dosage: 20 MG DAILY AT BEDTIME

REACTIONS (2)
  - Anxiety [Recovered/Resolved]
  - Injection site pain [Recovered/Resolved]
